FAERS Safety Report 6988527-X (Version None)
Quarter: 2010Q3

REPORT INFORMATION
  Report Type: 
  Country: None (occurrence: None)
  Receive Date: 20100827
  Receipt Date: 20100526
  Transmission Date: 20110219
  Serious: Yes (Life-Threatening)
  Sender: FDA-Public Use
  Company Number: 002214

PATIENT
  Sex: Female
  Weight: 50.3 kg

DRUGS (8)
  1. LACOSAMIDE [Suspect]
     Indication: CONVULSION
     Dosage: 25 MG BID ORAL, 25 MG QD ORAL
     Route: 048
     Dates: end: 20091026
  2. LACOSAMIDE [Suspect]
     Indication: CONVULSION
     Dosage: 25 MG BID ORAL, 25 MG QD ORAL
     Route: 048
     Dates: start: 20090917
  3. DILANTIN [Concomitant]
  4. TYLENOL PM [Concomitant]
  5. SYNTHROID [Concomitant]
  6. CENOVIS MEGA CALCIUM PLUS D [Concomitant]
  7. VITAMIN B [Concomitant]
  8. ALPRAZOLAM [Concomitant]

REACTIONS (6)
  - ANTICONVULSANT DRUG LEVEL INCREASED [None]
  - DIZZINESS [None]
  - PSYCHIATRIC SYMPTOM [None]
  - SOMNOLENCE [None]
  - SUICIDAL IDEATION [None]
  - VISION BLURRED [None]
